FAERS Safety Report 9373315 (Version 4)
Quarter: 2013Q3

REPORT INFORMATION
  Report Type: Report from Study
  Country: US (occurrence: US)
  Receive Date: 20130627
  Receipt Date: 20130820
  Transmission Date: 20140515
  Serious: Yes (Hospitalization)
  Sender: FDA-Public Use
  Company Number: US-ACTELION-A-US2013-84874

PATIENT
  Age: 42 Year
  Sex: Female

DRUGS (3)
  1. TRACLEER [Suspect]
     Indication: PULMONARY ARTERIAL HYPERTENSION
     Dosage: UNK
     Route: 048
  2. REMODULIN [Suspect]
     Dosage: UNK
     Dates: start: 20130611
  3. SILDENAFIL [Concomitant]

REACTIONS (19)
  - Pleural effusion [Recovering/Resolving]
  - Breath sounds absent [Recovering/Resolving]
  - Productive cough [Recovering/Resolving]
  - Viral infection [Recovering/Resolving]
  - Burning sensation [Recovering/Resolving]
  - Infusion site warmth [Recovering/Resolving]
  - Infusion site pain [Unknown]
  - Infusion site erythema [Recovering/Resolving]
  - Blood potassium increased [Recovering/Resolving]
  - Jugular vein distension [Unknown]
  - Nausea [Unknown]
  - Pain [Recovering/Resolving]
  - Dyspnoea [Recovering/Resolving]
  - Dyspnoea exertional [Unknown]
  - Headache [Recovering/Resolving]
  - Local swelling [Recovering/Resolving]
  - Malaise [Unknown]
  - Vomiting [Unknown]
  - Decreased appetite [Unknown]
